FAERS Safety Report 4367005-0 (Version None)
Quarter: 2004Q2

REPORT INFORMATION
  Report Type: 
  Country: None (occurrence: None)
  Receive Date: 20040527
  Receipt Date: 20040527
  Transmission Date: 20050107
  Serious: Yes (Death)
  Sender: FDA-Public Use
  Company Number: None

PATIENT
  Age: 71 Year
  Sex: Female
  Weight: 47.6277 kg

DRUGS (1)
  1. LEXAPRO [Suspect]
     Dosage: 1 PER DAY

REACTIONS (1)
  - COMPLETED SUICIDE [None]
